FAERS Safety Report 21561986 (Version 1)
Quarter: 2022Q4

REPORT INFORMATION
  Report Type: Spontaneous
  Country: US (occurrence: None)
  Receive Date: 20221104
  Receipt Date: 20221104
  Transmission Date: 20230112
  Serious: No
  Sender: FDA-Public Use
  Company Number: None

PATIENT
  Age: 75 Year
  Sex: Male

DRUGS (1)
  1. ADBRY [Suspect]
     Active Substance: TRALOKINUMAB-LDRM
     Indication: Dermatitis atopic
     Dosage: INJECT 300MG (2 SYRINGES) SUBCUTANEOUSLY EVERY 2 WEEKS STARTING ON DAY 15 AS DIRECTED?
     Route: 058
     Dates: start: 202204

REACTIONS (2)
  - Accident [None]
  - Therapy interrupted [None]
